FAERS Safety Report 5289378-7 (Version None)
Quarter: 2007Q2

REPORT INFORMATION
  Report Type: 
  Country: None (occurrence: None)
  Receive Date: 20070404
  Receipt Date: 20070404
  Transmission Date: 20071010
  Serious: Yes (Other)
  Sender: FDA-Public Use
  Company Number: None

PATIENT
  Sex: Female

DRUGS (1)
  1. BYETTA [Suspect]
     Indication: DIABETES MELLITUS
     Dosage: 10 MCG  TWICE DAILY  SQ
     Route: 058
     Dates: start: 20070401, end: 20070403

REACTIONS (1)
  - NO THERAPEUTIC RESPONSE [None]
